FAERS Safety Report 20161268 (Version 1)
Quarter: 2021Q4

REPORT INFORMATION
  Report Type: Spontaneous
  Country: JP (occurrence: JP)
  Receive Date: 20211208
  Receipt Date: 20211208
  Transmission Date: 20220303
  Serious: Yes (Other)
  Sender: FDA-Public Use
  Company Number: JP-Merck Healthcare KGaA-9283420

PATIENT
  Age: 60 Year
  Sex: Male

DRUGS (5)
  1. ERBITUX [Suspect]
     Active Substance: CETUXIMAB
     Indication: Pharyngeal cancer metastatic
     Dosage: 400 MG/M2, UNKNOWN, AT WEEK 1
     Route: 041
  2. ERBITUX [Suspect]
     Active Substance: CETUXIMAB
     Dosage: 250 MG/M2, UNKNOWN (FROM WEEK 2 TO WEEK 8  )
     Route: 041
  3. PACLITAXEL [Concomitant]
     Active Substance: PACLITAXEL
     Indication: Pharyngeal cancer metastatic
     Dosage: 80 MG/M2, UNK, FROM WEEK 1 TO WEEK 8
  4. CARBOPLATIN [Concomitant]
     Active Substance: CARBOPLATIN
     Indication: Pharyngeal cancer metastatic
     Dosage: AUC (AREA UNDER THE CURVE) 1.5, FROM WEEK 1 TO WEEK 8.
  5. CISPLATIN [Concomitant]
     Active Substance: CISPLATIN
     Indication: Pharyngeal cancer metastatic
     Dosage: 80 MG/M2, UNK

REACTIONS (1)
  - Neuropathy peripheral [Unknown]
